FAERS Safety Report 16802980 (Version 1)
Quarter: 2019Q3

REPORT INFORMATION
  Report Type: Spontaneous
  Country: US (occurrence: US)
  Receive Date: 20190913
  Receipt Date: 20190913
  Transmission Date: 20191005
  Serious: Yes (Other)
  Sender: FDA-Public Use
  Company Number: US-ROCHE-2399250

PATIENT
  Sex: Male
  Weight: 68.1 kg

DRUGS (2)
  1. TAMIFLU [Suspect]
     Active Substance: OSELTAMIVIR PHOSPHATE
     Indication: INFLUENZA
     Dosage: ONGOING: NO
     Route: 048
     Dates: start: 2017
  2. KLONOPIN [Suspect]
     Active Substance: CLONAZEPAM
     Indication: ANXIETY
     Dosage: MOST RECENT DOSE 29/AUG/2019
     Route: 048

REACTIONS (2)
  - Drug ineffective [Unknown]
  - Schizophrenia [Not Recovered/Not Resolved]
